FAERS Safety Report 24765502 (Version 1)
Quarter: 2024Q4

REPORT INFORMATION
  Report Type: Spontaneous
  Country: ES (occurrence: ES)
  Receive Date: 20241223
  Receipt Date: 20241223
  Transmission Date: 20250114
  Serious: Yes (Death, Hospitalization)
  Sender: TEVA
  Company Number: None

PATIENT
  Age: 73 Year
  Sex: Female

DRUGS (4)
  1. EVEROLIMUS [Suspect]
     Active Substance: EVEROLIMUS
     Indication: Invasive breast carcinoma
     Dosage: 30 TABLETS
     Route: 048
     Dates: start: 20240626, end: 20240918
  2. IBRANCE [Concomitant]
     Active Substance: PALBOCICLIB
     Indication: Breast cancer
     Route: 048
     Dates: start: 202303, end: 202405
  3. LETROZOLE [Concomitant]
     Active Substance: LETROZOLE
     Indication: Breast cancer
     Dosage: LETROZOL (2758A)
     Route: 048
     Dates: start: 202303, end: 202305
  4. FULVESTRANT [Concomitant]
     Active Substance: FULVESTRANT
     Indication: Invasive breast carcinoma
     Dosage: FULVESTRANT (2925A)
     Route: 030
     Dates: start: 20240626, end: 20240918

REACTIONS (1)
  - Pneumonitis [Fatal]

NARRATIVE: CASE EVENT DATE: 20240901
